FAERS Safety Report 18160617 (Version 1)
Quarter: 2020Q3

REPORT INFORMATION
  Report Type: Spontaneous
  Country: US (occurrence: US)
  Receive Date: 20200818
  Receipt Date: 20200818
  Transmission Date: 20201103
  Serious: No
  Sender: FDA-Public Use
  Company Number: US-BEH-2020121335

PATIENT
  Age: 52 Year
  Sex: Female

DRUGS (23)
  1. CITALOPRAM [Concomitant]
     Active Substance: CITALOPRAM HYDROBROMIDE
  2. TAMIFLU [Concomitant]
     Active Substance: OSELTAMIVIR PHOSPHATE
  3. GUAIFENESIN. [Concomitant]
     Active Substance: GUAIFENESIN
  4. METHOTREXATE. [Concomitant]
     Active Substance: METHOTREXATE
  5. LISINOPRIL. [Concomitant]
     Active Substance: LISINOPRIL
  6. DYMISTA [Concomitant]
     Active Substance: AZELASTINE HYDROCHLORIDE\FLUTICASONE PROPIONATE
  7. BUPROPION. [Concomitant]
     Active Substance: BUPROPION
  8. MONTELUKAST [Concomitant]
     Active Substance: MONTELUKAST SODIUM
  9. TYLENOL [Concomitant]
     Active Substance: ACETAMINOPHEN
  10. BENADRYL [Concomitant]
     Active Substance: DIPHENHYDRAMINE HYDROCHLORIDE
  11. AMLODIPINE [Concomitant]
     Active Substance: AMLODIPINE BESYLATE
  12. FOLIC ACID. [Concomitant]
     Active Substance: FOLIC ACID
  13. LAMOTRIGINE. [Concomitant]
     Active Substance: LAMOTRIGINE
  14. MUCINEX [Concomitant]
     Active Substance: GUAIFENESIN
  15. XULANE [Concomitant]
     Active Substance: ETHINYL ESTRADIOL\NORELGESTROMIN
  16. NABUMETONE. [Concomitant]
     Active Substance: NABUMETONE
  17. PRAVASTATIN. [Concomitant]
     Active Substance: PRAVASTATIN
  18. CLONAZEPAM. [Concomitant]
     Active Substance: CLONAZEPAM
  19. PROMETHAZINE [Concomitant]
     Active Substance: PROMETHAZINE HYDROCHLORIDE
  20. HIZENTRA [Suspect]
     Active Substance: HUMAN IMMUNOGLOBULIN G
     Indication: HYPOGAMMAGLOBULINAEMIA
     Dosage: 20 GRAM, QW
     Route: 058
  21. ALLEGRA [Concomitant]
     Active Substance: FEXOFENADINE HYDROCHLORIDE
  22. ZIPRASIDONE. [Concomitant]
     Active Substance: ZIPRASIDONE
  23. JANUVIA [Concomitant]
     Active Substance: SITAGLIPTIN PHOSPHATE

REACTIONS (3)
  - Ill-defined disorder [Not Recovered/Not Resolved]
  - No adverse event [Unknown]
  - Product dose omission issue [Unknown]

NARRATIVE: CASE EVENT DATE: 202008
